FAERS Safety Report 10539688 (Version 2)
Quarter: 2014Q4

REPORT INFORMATION
  Report Type: Spontaneous
  Country: US (occurrence: US)
  Receive Date: 20141024
  Receipt Date: 20141103
  Transmission Date: 20150529
  Serious: Yes (Hospitalization, Other)
  Sender: FDA-Public Use
  Company Number: US-AMGEN-USASP2014080723

PATIENT
  Age: 50 Year
  Sex: Female
  Weight: 72.56 kg

DRUGS (1)
  1. ENBREL [Suspect]
     Active Substance: ETANERCEPT
     Indication: RHEUMATOID ARTHRITIS
     Dosage: 50 MG, QWK
     Route: 065
     Dates: start: 20040701

REACTIONS (21)
  - Anxiety [Unknown]
  - Cerebrovascular accident [Recovered/Resolved]
  - Electrolyte depletion [Recovered/Resolved]
  - Headache [Not Recovered/Not Resolved]
  - Head injury [Recovered/Resolved]
  - Fractured coccyx [Recovered/Resolved]
  - Back pain [Recovered/Resolved]
  - Hyponatraemia [Recovered/Resolved]
  - Spinal fracture [Recovered/Resolved]
  - Fall [Unknown]
  - Ultrasound breast abnormal [Unknown]
  - Nausea [Unknown]
  - Agitation [Not Recovered/Not Resolved]
  - Pain [Not Recovered/Not Resolved]
  - Blood potassium decreased [Recovered/Resolved]
  - Nervousness [Unknown]
  - Therapeutic response decreased [Unknown]
  - Contusion [Unknown]
  - Arthralgia [Unknown]
  - Restlessness [Not Recovered/Not Resolved]
  - Tremor [Not Recovered/Not Resolved]

NARRATIVE: CASE EVENT DATE: 2013
